FAERS Safety Report 8441014-4 (Version None)
Quarter: 2012Q2

REPORT INFORMATION
  Report Type: 
  Country: None (occurrence: None)
  Receive Date: 20120615
  Receipt Date: 20110706
  Transmission Date: 20120825
  Serious: No
  Sender: FDA-Public Use
  Company Number: US-NOVEN-11US002754

PATIENT
  Sex: Male
  Weight: 20.408 kg

DRUGS (4)
  1. DAYTRANA [Suspect]
     Indication: ATTENTION DEFICIT/HYPERACTIVITY DISORDER
     Dosage: 10 MG, QD
     Route: 062
     Dates: start: 20110706
  2. MELATONIN [Concomitant]
     Indication: SLEEP DISORDER
     Dosage: 1 MG, UNK
     Route: 048
  3. ZYRTEC [Concomitant]
     Indication: HYPERSENSITIVITY
     Dosage: 2 ML, UNK
     Route: 048
  4. INTUNIV [Concomitant]
     Indication: ATTENTION DEFICIT/HYPERACTIVITY DISORDER
     Dosage: 1 MG, UNK
     Route: 048
     Dates: start: 20110101

REACTIONS (4)
  - DRY MOUTH [None]
  - CRYING [None]
  - OFF LABEL USE [None]
  - APPLICATION SITE ERYTHEMA [None]
